FAERS Safety Report 24217626 (Version 2)
Quarter: 2024Q3

REPORT INFORMATION
  Report Type: Spontaneous
  Country: FR (occurrence: FR)
  Receive Date: 20240816
  Receipt Date: 20240918
  Transmission Date: 20241017
  Serious: Yes (Other)
  Sender: UCB
  Company Number: FR-UCBSA-2023044569

PATIENT
  Sex: Male
  Weight: 52 kg

DRUGS (9)
  1. VIMPAT [Suspect]
     Active Substance: LACOSAMIDE
     Indication: Epilepsy
     Dosage: 150 MILLIGRAM, 2X/DAY (BID)
     Dates: start: 2022
  2. VIMPAT [Suspect]
     Active Substance: LACOSAMIDE
     Dosage: 50 MILLIGRAM
     Dates: start: 2022
  3. VIMPAT [Suspect]
     Active Substance: LACOSAMIDE
     Dosage: 350 MILLIGRAM (200 MG IN THE MORNING AND 150 MG AT NIGHT)
     Dates: start: 20220515
  4. KEPPRA [Suspect]
     Active Substance: LEVETIRACETAM
     Indication: Epilepsy
     Dosage: 1500 MILLIGRAM, 2X/DAY (BID), MORNING AND EVENING
     Dates: start: 2007
  5. KEPPRA [Suspect]
     Active Substance: LEVETIRACETAM
     Dosage: 1250MG
     Dates: start: 20221113
  6. KEPPRA [Suspect]
     Active Substance: LEVETIRACETAM
     Dosage: 1000 MILLIGRAM
     Dates: start: 20221127
  7. FYCOMPA [Concomitant]
     Active Substance: PERAMPANEL
     Indication: Product used for unknown indication
     Dosage: 2 MILLIGRAM, ONCE DAILY (QD)
  8. CENOBAMATE [Concomitant]
     Active Substance: CENOBAMATE
     Indication: Product used for unknown indication
     Dosage: 12.5 MILLIGRAM
  9. CENOBAMATE [Concomitant]
     Active Substance: CENOBAMATE
     Dosage: 25 MILLIGRAM

REACTIONS (17)
  - Hepatic failure [Recovering/Resolving]
  - Syncope [Not Recovered/Not Resolved]
  - Hypersexuality [Not Recovered/Not Resolved]
  - Dark circles under eyes [Unknown]
  - Aphthous ulcer [Not Recovered/Not Resolved]
  - Mouth ulceration [Unknown]
  - Constipation [Recovering/Resolving]
  - Fatigue [Not Recovered/Not Resolved]
  - Asthenia [Unknown]
  - Irritable bowel syndrome [Recovering/Resolving]
  - Cerebral disorder [Not Recovered/Not Resolved]
  - Rash [Not Recovered/Not Resolved]
  - Petechiae [Not Recovered/Not Resolved]
  - Eosinophil count decreased [Unknown]
  - Monocyte count increased [Unknown]
  - Glomerular filtration rate decreased [Unknown]
  - Product use issue [Unknown]

NARRATIVE: CASE EVENT DATE: 20170101
